FAERS Safety Report 9608909 (Version 4)
Quarter: 2013Q4

REPORT INFORMATION
  Report Type: Spontaneous
  Country: JP (occurrence: JP)
  Receive Date: 20131009
  Receipt Date: 20131202
  Transmission Date: 20140711
  Serious: Yes (Death, Other)
  Sender: FDA-Public Use
  Company Number: JP-OTSUKA-JP-2013-14253

PATIENT
  Age: 75 Year
  Sex: Male
  Weight: 65.1 kg

DRUGS (29)
  1. SAMSCA [Suspect]
     Indication: CARDIAC FAILURE CONGESTIVE
     Dosage: 3.75 MG MILLIGRAM(S), QD
     Route: 051
     Dates: start: 20130823, end: 20130829
  2. SAMSCA [Suspect]
     Dosage: 7.5 MG MILLIGRAM(S), QD
     Route: 051
     Dates: start: 20130830, end: 20130919
  3. ALDACTONE A [Suspect]
     Indication: CARDIAC FAILURE CONGESTIVE
     Dosage: 25 MG MILLIGRAM(S), QD
     Route: 051
     Dates: start: 20130726, end: 20130928
  4. LASIX [Suspect]
     Indication: CARDIAC FAILURE CONGESTIVE
     Dosage: 0.4-1.0 ML/HOUR
     Route: 042
     Dates: start: 20130731, end: 20130805
  5. LASIX [Suspect]
     Dosage: 0.5-2.0 ML/HOUR
     Route: 042
     Dates: start: 20130927, end: 20130928
  6. LASIX [Suspect]
     Indication: CARDIAC FAILURE CONGESTIVE
     Dosage: 40 MG MILLIGRAM(S), DAILY DOSE
     Route: 051
     Dates: start: 20130812, end: 20130928
  7. BAYASPIRIN [Concomitant]
     Indication: ACUTE MYOCARDIAL INFARCTION
     Dosage: 100 MG MILLIGRAM(S), QD
     Route: 051
     Dates: start: 20130720, end: 20130928
  8. PLAVIX [Concomitant]
     Indication: ACUTE MYOCARDIAL INFARCTION
     Dosage: 75 MG MILLIGRAM(S), QD
     Route: 051
     Dates: start: 20130720, end: 20130928
  9. TAKEPRON [Concomitant]
     Indication: PROPHYLAXIS AGAINST GASTROINTESTINAL ULCER
     Dosage: 15 MG MILLIGRAM(S), QD
     Route: 051
     Dates: start: 20130720, end: 20130928
  10. DOBUPUM [Concomitant]
     Indication: CARDIAC FAILURE CONGESTIVE
     Dosage: 3 ML/HOUR
     Route: 041
     Dates: start: 20130720, end: 20130928
  11. NOVO HEPARIN [Concomitant]
     Indication: CARDIAC FAILURE
     Dosage: 500-800 IU/HOUR
     Route: 041
     Dates: start: 20130720, end: 20130928
  12. RENIVACE [Concomitant]
     Indication: ACUTE MYOCARDIAL INFARCTION
     Dosage: 2.5 MG MILLIGRAM(S), QD
     Route: 051
     Dates: start: 20130721, end: 20130729
  13. RENIVACE [Concomitant]
     Dosage: 5 MG MILLIGRAM(S), DAILY DOSE
     Route: 051
     Dates: start: 20130730, end: 20130803
  14. RENIVACE [Concomitant]
     Dosage: 6.25 MG MILLIGRAM(S), DAILY DOSE
     Route: 051
     Dates: start: 20130804, end: 20130819
  15. RENIVACE [Concomitant]
     Dosage: 1.75 MG MILLIGRAM(S), DAILY DOSE
     Route: 051
     Dates: start: 20130820, end: 20130918
  16. MAINTATE [Concomitant]
     Indication: ACUTE MYOCARDIAL INFARCTION
     Dosage: 0.625 MG MILLIGRAM(S), BID
     Route: 051
     Dates: start: 20130721, end: 20130928
  17. MAINTATE [Concomitant]
     Indication: CARDIAC FAILURE CONGESTIVE
  18. PRECEDEX [Concomitant]
     Indication: ENDOTRACHEAL INTUBATION
     Dosage: UNK
     Route: 041
     Dates: start: 20130727, end: 20130727
  19. PRECEDEX [Concomitant]
     Dosage: UNK
     Route: 041
     Dates: start: 20130729
  20. MILRILA [Concomitant]
     Indication: CARDIAC FAILURE CONGESTIVE
     Dosage: UNK
     Route: 042
     Dates: start: 20130729, end: 20130809
  21. MILRILA [Concomitant]
     Dosage: UNK
     Route: 042
     Dates: start: 20130810, end: 20130829
  22. RISPERDAL [Concomitant]
     Indication: RESTLESSNESS
     Dosage: 5 MG MILLIGRAM(S), BID
     Route: 051
     Dates: start: 20130807, end: 20130928
  23. LUNESTA [Concomitant]
     Indication: INSOMNIA
     Dosage: 1 MG MILLIGRAM(S), QD
     Route: 051
     Dates: start: 20130807, end: 20130928
  24. YOKUKAN-SAN [Concomitant]
     Indication: INSOMNIA
     Dosage: 2 DF DOSAGE FORM, DAILY DOSE
     Route: 051
     Dates: start: 20130827, end: 20130928
  25. TIGASON [Concomitant]
     Indication: PSORIASIS
     Dosage: 20 MG MILLIGRAM(S), DAILY DOSE
     Route: 051
     Dates: start: 20130910, end: 20130918
  26. ALLEGRA [Concomitant]
     Indication: PSORIASIS
     Dosage: 120 MG MILLIGRAM(S), DAILY DOSE
     Route: 051
     Dates: start: 20130913, end: 20130918
  27. TRAZENTA [Concomitant]
     Indication: DIABETES MELLITUS
     Dosage: 5 MG MILLIGRAM(S), QD
     Route: 051
     Dates: start: 20130915, end: 20130918
  28. TANATRIL [Concomitant]
     Indication: CARDIAC FAILURE CONGESTIVE
     Dosage: 2.5 MG MILLIGRAM(S), QD
     Route: 051
     Dates: start: 20130919, end: 20130928
  29. GLACTIVE [Concomitant]
     Indication: DIABETES MELLITUS
     Dosage: 50 MG MILLIGRAM(S), QD
     Route: 051
     Dates: start: 20130919, end: 20130928

REACTIONS (7)
  - Hypernatraemia [Fatal]
  - Dehydration [Fatal]
  - Septic shock [Fatal]
  - Prerenal failure [Fatal]
  - Urinary tract infection [Fatal]
  - Pyrexia [Fatal]
  - Thirst [Not Recovered/Not Resolved]
